FAERS Safety Report 4574425-8 (Version None)
Quarter: 2005Q1

REPORT INFORMATION
  Report Type: 
  Country: None (occurrence: None)
  Receive Date: 20050208
  Receipt Date: 20050103
  Transmission Date: 20050727
  Serious: Yes (Hospitalization)
  Sender: FDA-Public Use
  Company Number: US-GLAXOSMITHKLINE-A0543409A

PATIENT
  Age: 48 Year
  Sex: Male
  Weight: 104.5 kg

DRUGS (10)
  1. OXY PADS MAXIMUM STRENGTH [Suspect]
     Indication: ACNE
     Route: 061
     Dates: start: 19950101
  2. OXY BLACKHEAD CLEARING DAILY PADS [Suspect]
     Indication: ACNE
     Route: 061
     Dates: start: 20050124
  3. CODEINE [Concomitant]
  4. VICODIN [Concomitant]
  5. NEURONTIN [Concomitant]
  6. SOMA [Concomitant]
  7. LIPITOR [Concomitant]
  8. ASPIRIN [Concomitant]
  9. LOMOTIL [Concomitant]
  10. ZANTAC [Concomitant]

REACTIONS (5)
  - DEPRESSION [None]
  - DIABETES MELLITUS [None]
  - PRURITUS [None]
  - RASH MACULAR [None]
  - RHEUMATOID ARTHRITIS [None]
